FAERS Safety Report 18547640 (Version 1)
Quarter: 2020Q4

REPORT INFORMATION
  Report Type: Report from Study
  Country: None (occurrence: BR)
  Receive Date: 20201126
  Receipt Date: 20201126
  Transmission Date: 20210114
  Serious: Yes (Hospitalization)
  Sender: FDA-Public Use
  Company Number: BR-ABBVIE-20P-020-3662883-00

PATIENT
  Sex: Female
  Weight: 56 kg

DRUGS (4)
  1. VENLAFAXINE HYDROCHLORIDE. [Concomitant]
     Active Substance: VENLAFAXINE HYDROCHLORIDE
     Dosage: THE THERAPY WAS SUSPENDED AND THEN RESUMED IN AUG 2020
     Route: 048
  2. OMEGA 3 [FISH OIL] [Concomitant]
     Active Substance: FISH OIL
     Indication: NUTRITIONAL SUPPLEMENTATION
     Dosage: ONGOING
  3. VENLAFAXINE HYDROCHLORIDE. [Concomitant]
     Active Substance: VENLAFAXINE HYDROCHLORIDE
     Indication: ANTIDEPRESSANT THERAPY
     Dosage: IN THE MORNING ONGOING VENLAFAXINE HYDROCHLORIDE 150MG
     Route: 048
     Dates: start: 202008
  4. SYNTHROID [Suspect]
     Active Substance: LEVOTHYROXINE SODIUM
     Indication: THYROIDECTOMY
     Dosage: THERAPY START DATE PATIENT WAS YOUNGER, OVER 50 YEARS AGO.?FASTING ONGOING
     Route: 048
     Dates: start: 1970

REACTIONS (4)
  - Endotracheal intubation [Recovered/Resolved]
  - Blood thyroid stimulating hormone increased [Unknown]
  - COVID-19 [Recovered/Resolved]
  - Blood thyroid stimulating hormone decreased [Unknown]

NARRATIVE: CASE EVENT DATE: 2020
